FAERS Safety Report 11623958 (Version 2)
Quarter: 2015Q4

REPORT INFORMATION
  Report Type: Spontaneous
  Country: US (occurrence: US)
  Receive Date: 20151013
  Receipt Date: 20151120
  Transmission Date: 20160304
  Serious: No
  Sender: FDA-Public Use
  Company Number: US-JNJFOC-20150816775

PATIENT
  Age: 68 Year
  Sex: Female
  Weight: 77.11 kg

DRUGS (2)
  1. WOMENS ROGAINE [Suspect]
     Active Substance: MINOXIDIL
     Route: 061
  2. WOMENS ROGAINE [Suspect]
     Active Substance: MINOXIDIL
     Indication: ACCIDENTAL EXPOSURE TO PRODUCT
     Dosage: ONE TIME
     Route: 061
     Dates: start: 20150821, end: 20150821

REACTIONS (3)
  - Accidental exposure to product [Unknown]
  - Drug administered at inappropriate site [Unknown]
  - Product quality issue [Unknown]

NARRATIVE: CASE EVENT DATE: 20150821
